FAERS Safety Report 11859572 (Version 4)
Quarter: 2016Q1

REPORT INFORMATION
  Report Type: Spontaneous
  Country: JP (occurrence: JP)
  Receive Date: 20151221
  Receipt Date: 20160310
  Transmission Date: 20160526
  Serious: Yes (Hospitalization, Other)
  Sender: FDA-Public Use
  Company Number: JP-MEDTRONIC-1045751

PATIENT
  Age: 62 Year
  Sex: Male
  Weight: 56 kg

DRUGS (1)
  1. GABALON INTRATHECAL 0.2% [Suspect]
     Active Substance: BACLOFEN
     Indication: CEREBRAL HAEMORRHAGE
     Route: 037
     Dates: start: 20130911

REACTIONS (9)
  - C-reactive protein increased [Unknown]
  - Pyrexia [Unknown]
  - Spinal compression fracture [Unknown]
  - White blood cell count increased [Unknown]
  - Pneumonia [Recovering/Resolving]
  - Computerised tomogram thorax abnormal [Unknown]
  - Pneumonia aspiration [Recovering/Resolving]
  - Body temperature increased [Unknown]
  - Lumbar vertebral fracture [Unknown]

NARRATIVE: CASE EVENT DATE: 201505
